APPROVED DRUG PRODUCT: RIZATRIPTAN BENZOATE
Active Ingredient: RIZATRIPTAN BENZOATE
Strength: EQ 10MG BASE
Dosage Form/Route: TABLET;ORAL
Application: A203269 | Product #002 | TE Code: AB
Applicant: ALKEM LABORATORIES LTD
Approved: Feb 18, 2016 | RLD: No | RS: No | Type: RX